FAERS Safety Report 4492411-3 (Version None)
Quarter: 2004Q4

REPORT INFORMATION
  Report Type: 
  Country: None (occurrence: None)
  Receive Date: 20041102
  Receipt Date: 20041102
  Transmission Date: 20050328
  Serious: No
  Sender: FDA-Public Use
  Company Number: None

PATIENT
  Age: 94 Year
  Sex: Female
  Weight: 79.3795 kg

DRUGS (2)
  1. LASIX [Suspect]
     Indication: OEDEMA PERIPHERAL
     Dosage: 40 MG QD
  2. TAPAZOLE [Suspect]
     Indication: HYPERTHYROIDISM
     Dosage: 5 MG QD

REACTIONS (2)
  - OEDEMA PERIPHERAL [None]
  - PHARMACEUTICAL PRODUCT COMPLAINT [None]
